FAERS Safety Report 19989513 (Version 1)
Quarter: 2021Q4

REPORT INFORMATION
  Report Type: Spontaneous
  Country: US (occurrence: US)
  Receive Date: 20211025
  Receipt Date: 20211025
  Transmission Date: 20220303
  Serious: Yes (Hospitalization)
  Sender: FDA-Public Use
  Company Number: US-JNJFOC-20211025137

PATIENT
  Age: 29 Year
  Sex: Male
  Weight: 72 kg

DRUGS (3)
  1. ACETAMINOPHEN [Suspect]
     Active Substance: ACETAMINOPHEN
     Indication: Suicide attempt
     Dosage: TOTAL ACETAMINOPHEN DOSE OF 50000 MG ONCE
     Route: 048
     Dates: start: 20020519, end: 20020519
  2. EFFEXOR [Concomitant]
     Active Substance: VENLAFAXINE HYDROCHLORIDE
     Indication: Product used for unknown indication
     Route: 065
     Dates: end: 20020519
  3. PROZAC [Concomitant]
     Active Substance: FLUOXETINE HYDROCHLORIDE
     Indication: Product used for unknown indication
     Dosage: TOTAL DOSE 90 MG PER DAY TAKEN OVER 7 DAYS
     Route: 065
     Dates: end: 20020519

REACTIONS (5)
  - Suicide attempt [Recovered/Resolved]
  - Tachycardia [Recovered/Resolved]
  - Acute hepatic failure [Recovered/Resolved]
  - Acute kidney injury [Recovered/Resolved]
  - Intentional overdose [Recovered/Resolved]

NARRATIVE: CASE EVENT DATE: 20020523
